FAERS Safety Report 24190838 (Version 2)
Quarter: 2024Q3

REPORT INFORMATION
  Report Type: Spontaneous
  Country: US (occurrence: US)
  Receive Date: 20240808
  Receipt Date: 20240909
  Transmission Date: 20241016
  Serious: No
  Sender: ALEMBIC
  Company Number: US-ALEMBIC PHARMACUETICALS LIMITED-2024SCAL001068

PATIENT

DRUGS (1)
  1. BIMATOPROST [Suspect]
     Active Substance: BIMATOPROST
     Indication: Madarosis
     Dosage: 1 DROP ON A CLEAN BRUSH AND APPLY ON THE EYELID; REPEAT FOR THE OTHER EYELID USING A NEW CLEAN BRUSH
     Route: 061

REACTIONS (1)
  - Dark circles under eyes [Not Recovered/Not Resolved]

NARRATIVE: CASE EVENT DATE: 20240701
